FAERS Safety Report 7908337-6 (Version None)
Quarter: 2011Q4

REPORT INFORMATION
  Report Type: 
  Country: None (occurrence: None)
  Receive Date: 20111109
  Receipt Date: 20111109
  Transmission Date: 20120403
  Serious: Yes (Life-Threatening, Disabling)
  Sender: FDA-Public Use
  Company Number: None

PATIENT
  Age: 56 Year
  Sex: Female
  Weight: 77.3 kg

DRUGS (1)
  1. LEVOFLOXACIN [Suspect]
     Indication: SINUSITIS
     Dosage: 500 MGS 1/DAY
     Dates: start: 20110916, end: 20110920

REACTIONS (11)
  - PAIN IN EXTREMITY [None]
  - PRODUCT QUALITY ISSUE [None]
  - SLEEP DISORDER [None]
  - ARTHRALGIA [None]
  - MUSCULOSKELETAL PAIN [None]
  - TENDON PAIN [None]
  - FEAR [None]
  - BONE PAIN [None]
  - MYALGIA [None]
  - JOINT SWELLING [None]
  - ABASIA [None]
